FAERS Safety Report 4513377-3 (Version None)
Quarter: 2004Q4

REPORT INFORMATION
  Report Type: 
  Country: None (occurrence: None)
  Receive Date: 20041130
  Receipt Date: 20040830
  Transmission Date: 20050328
  Serious: No
  Sender: FDA-Public Use
  Company Number: US-BRISTOL-MYERS SQUIBB COMPANY-12688032

PATIENT
  Age: 59 Year
  Sex: Male
  Weight: 82 kg

DRUGS (36)
  1. ERBITUX [Suspect]
     Indication: COLON CANCER STAGE IV
     Dosage: LOAD DOSE 800MG 8-11-04, 2ND DOSE (500MG) 8-17-04, 3RD DOSE (500MG) 8-24-04
     Route: 042
     Dates: start: 20040801, end: 20040801
  2. ZOFRAN [Concomitant]
     Indication: PREMEDICATION
     Route: 042
  3. DECADRON [Concomitant]
     Indication: PREMEDICATION
     Route: 042
  4. NEUPOGEN [Concomitant]
     Dosage: 480 MG SC DAILY FOR 5 DAYS AFTER CETUXIMAB INFUSION
     Route: 058
  5. LASIX [Concomitant]
     Route: 040
     Dates: start: 20040810, end: 20040810
  6. POTASSIUM CHLORIDE [Concomitant]
     Dosage: 40 MEQ IV PUSH
     Route: 040
     Dates: start: 20040811, end: 20040811
  7. KYTRIL [Concomitant]
     Dosage: 1 MG TWICE A DAY TIMES 5 DAYS
  8. ATIVAN [Concomitant]
     Dosage: 1 MG EVERY 6 HRS AS NEEDED
     Route: 048
  9. LEVAQUIN [Concomitant]
     Dosage: STARTED ON 14-AUG-04 FOR 10 DAYS
     Dates: start: 20040814
  10. IRINOTECAN [Concomitant]
     Dosage: GIVEN ON DAY 1 OF TREATMENT ON 10-AUG-04
     Route: 042
     Dates: start: 20040810, end: 20040810
  11. LEUCOVORIN [Concomitant]
     Route: 042
     Dates: start: 20040810, end: 20040810
  12. FLUOROURACIL [Concomitant]
     Dosage: 820 MG IV PUSH, + CI OVER 46 HRS FOR TOTAL DOSE OF 4,920 MG (D/C 12-AUG-04)
     Route: 042
     Dates: start: 20040810, end: 20040812
  13. PREVACID [Concomitant]
  14. ZOLOFT [Concomitant]
  15. COUMADIN [Concomitant]
  16. RESTORIL [Concomitant]
  17. NEURONTIN [Concomitant]
  18. SYNTHROID [Concomitant]
  19. PARLODEL [Concomitant]
  20. ZAROXOLYN [Concomitant]
  21. GLIPIZIDE [Concomitant]
  22. OXYCONTIN [Concomitant]
  23. OXY-IR [Concomitant]
     Dosage: 5 MG ONE TABLET EVERY 2 HRS AS NEEDED
  24. PROVENTIL [Concomitant]
     Dosage: 2 PUFFS EVERY 4-6 HOURS AS NEEDED
  25. NOVOLIN R [Concomitant]
     Dosage: NOVOLIN REGULAR, 5 UNITS SC AS NEEDED BS } 300, 10 UNITS BS } 400
     Route: 058
  26. NOVOLIN N [Concomitant]
     Dosage: 20 UNITS SC EVERY MORNING AS NECESSARY
     Route: 058
  27. ELAVIL [Concomitant]
     Dosage: TAKEN AT NIGHT
  28. K-DUR [Concomitant]
  29. LACTULOSE [Concomitant]
     Dosage: 30 ML, 2-3 TIMES PER DAY AS NEEDED
  30. DYAZIDE [Concomitant]
     Dosage: DOSAGE FORM = 1 TABLET
  31. LASIX [Concomitant]
  32. ALDACTONE [Concomitant]
  33. KEFLEX [Concomitant]
     Dates: start: 20040824
  34. ZOMETA [Concomitant]
     Dosage: 4 MG IV MONTHLY
     Route: 042
  35. PROCRIT [Concomitant]
     Dosage: 1 DOSAGE FORM = 40,000 UNITS
     Route: 058
  36. CALCIUM + VITAMIN D [Concomitant]
     Dosage: DOSAGE FORM = CALCIUM 600 MG WITH VITAMIN D

REACTIONS (7)
  - CYANOSIS [None]
  - DERMATITIS ACNEIFORM [None]
  - OEDEMA PERIPHERAL [None]
  - PAIN IN EXTREMITY [None]
  - PULSE ABNORMAL [None]
  - RASH [None]
  - WOUND [None]
